FAERS Safety Report 18611006 (Version 1)
Quarter: 2020Q4

REPORT INFORMATION
  Report Type: Spontaneous
  Country: US (occurrence: US)
  Receive Date: 20201213
  Receipt Date: 20201213
  Transmission Date: 20210114
  Serious: No
  Sender: FDA-Public Use
  Company Number: None

PATIENT
  Age: 28 Year
  Sex: Male
  Weight: 81 kg

DRUGS (1)
  1. DEXTROAMPHET SACCHARAT, AMPHET ASPARTATE, DEXTROAMPHET SULFATE AND AMPHET SULFAT [Suspect]
     Active Substance: AMPHETAMINE ASPARTATE\AMPHETAMINE SULFATE\DEXTROAMPHETAMINE SACCHARATE\DEXTROAMPHETAMINE SULFATE
     Indication: ATTENTION DEFICIT HYPERACTIVITY DISORDER
     Dosage: ?          QUANTITY:1 TABLET(S);?
     Route: 048

REACTIONS (11)
  - Feeling abnormal [None]
  - Apathy [None]
  - Social problem [None]
  - Therapeutic product effect incomplete [None]
  - Confusional state [None]
  - Heart rate increased [None]
  - Product substitution issue [None]
  - Blood pressure increased [None]
  - Anxiety [None]
  - Quality of life decreased [None]
  - Disturbance in attention [None]

NARRATIVE: CASE EVENT DATE: 20201212
